FAERS Safety Report 9269280 (Version 3)
Quarter: 2013Q2

REPORT INFORMATION
  Report Type: Spontaneous
  Country: US (occurrence: US)
  Receive Date: 20130503
  Receipt Date: 20130618
  Transmission Date: 20140414
  Serious: Yes (Other)
  Sender: FDA-Public Use
  Company Number: US-BAUSCH-BL-2013-002244

PATIENT
  Age: 60 Year
  Sex: Male

DRUGS (2)
  1. ALREX (LOTEPREDNOL ETABONATE OPHTHALMIC SUSPENSION 0.2%) [Suspect]
     Indication: PROPHYLAXIS AGAINST TRANSPLANT REJECTION
     Dosage: 1 DROP; DAILY; LEFT EYE
     Route: 047
     Dates: start: 200805, end: 20130410
  2. ARTIFICIAL TEARS [Concomitant]
     Dosage: DROP; OPHTHALMIC
     Route: 047

REACTIONS (2)
  - Off label use [Recovered/Resolved]
  - Intraocular pressure increased [Recovered/Resolved]
